FAERS Safety Report 15572853 (Version 1)
Quarter: 2018Q4

REPORT INFORMATION
  Report Type: Spontaneous
  Country: US (occurrence: US)
  Receive Date: 20181031
  Receipt Date: 20181031
  Transmission Date: 20190205
  Serious: No
  Sender: FDA-Public Use
  Company Number: US-PRINSTON PHARMACEUTICAL INC.-2018PRN01360

PATIENT
  Sex: Female

DRUGS (2)
  1. METHOCARBAMOL. [Suspect]
     Active Substance: METHOCARBAMOL
     Dosage: UNK
  2. ACETAMINOPHEN. [Suspect]
     Active Substance: ACETAMINOPHEN
     Dosage: UNK

REACTIONS (6)
  - Peripheral swelling [Unknown]
  - Nerve compression [Unknown]
  - Arthritis [Not Recovered/Not Resolved]
  - Finger deformity [Unknown]
  - Gait disturbance [Unknown]
  - Limb injury [Not Recovered/Not Resolved]
